FAERS Safety Report 4952311-9 (Version None)
Quarter: 2006Q1

REPORT INFORMATION
  Report Type: 
  Country: None (occurrence: None)
  Receive Date: 20060320
  Receipt Date: 20060310
  Transmission Date: 20060701
  Serious: Yes (Other)
  Sender: FDA-Public Use
  Company Number: 2006033916

PATIENT
  Age: 17 Year
  Sex: Male
  Weight: 54.4316 kg

DRUGS (1)
  1. DRAMAMINE [Suspect]
     Dosage: 24 TABLETS ONCE, ORAL
     Route: 048
     Dates: start: 20060309, end: 20060309

REACTIONS (3)
  - ABNORMAL BEHAVIOUR [None]
  - OVERDOSE [None]
  - SPEECH DISORDER [None]
